FAERS Safety Report 26037922 (Version 1)
Quarter: 2025Q4

REPORT INFORMATION
  Report Type: Spontaneous
  Country: US (occurrence: US)
  Receive Date: 20251112
  Receipt Date: 20251112
  Transmission Date: 20260117
  Serious: Yes (Life-Threatening, Other)
  Sender: BRACCO
  Company Number: US-BRACCO-2025US06546

PATIENT
  Age: 65 Year
  Sex: Female

DRUGS (32)
  1. LUMASON [Suspect]
     Active Substance: SULFUR HEXAFLUORIDE
     Indication: Echocardiogram
     Dosage: 2 ML, SINGLE
     Dates: start: 20250919, end: 20250919
  2. LUMASON [Suspect]
     Active Substance: SULFUR HEXAFLUORIDE
     Indication: Echocardiogram
     Dosage: 2 ML, SINGLE
     Dates: start: 20250919, end: 20250919
  3. LUMASON [Suspect]
     Active Substance: SULFUR HEXAFLUORIDE
     Indication: Echocardiogram
     Dosage: 2 ML, SINGLE
     Dates: start: 20250919, end: 20250919
  4. ACETAMINOPHEN [Concomitant]
     Active Substance: ACETAMINOPHEN
     Route: 048
  5. ALBUTEROL SULFATE [Concomitant]
     Active Substance: ALBUTEROL SULFATE
     Dosage: NEBULIZED INHALATION
  6. ATORVASTATIN [Concomitant]
     Active Substance: ATORVASTATIN
  7. DEXTROSE [Concomitant]
     Active Substance: DEXTROSE MONOHYDRATE
     Dosage: 25G IN 50 ML
     Route: 040
  8. DEXMEDETOMIDINE [Concomitant]
     Active Substance: DEXMEDETOMIDINE
     Dosage: 400MCG + PREMIX 0.9% NACL 0.9% 100 ML
     Route: 042
  9. ELIQUIS [Concomitant]
     Active Substance: APIXABAN
  10. EZETIMIBE [Concomitant]
     Active Substance: EZETIMIBE
  11. FENOFIBRATE [Concomitant]
     Active Substance: FENOFIBRATE
  12. FUROSEMIDE [Concomitant]
     Active Substance: FUROSEMIDE
  13. GLUCAGON [Concomitant]
     Active Substance: GLUCAGON
     Route: 030
  14. DEXTROSE [Concomitant]
     Active Substance: DEXTROSE MONOHYDRATE
  15. INSULIN LISPRO [Concomitant]
     Active Substance: INSULIN LISPRO
  16. INSULIN GLARGINE [Concomitant]
     Active Substance: INSULIN GLARGINE
  17. LEVOTHYROXINE SODIUM [Concomitant]
     Active Substance: LEVOTHYROXINE SODIUM
  18. LIOTHYRONINE SODIUM [Concomitant]
     Active Substance: LIOTHYRONINE SODIUM
  19. MELATONIN [Concomitant]
     Active Substance: MELATONIN
     Dosage: BEDTIME
     Route: 048
  20. METOPROLOL SUCCINATE [Concomitant]
     Active Substance: METOPROLOL SUCCINATE
  21. MIRALAX [Concomitant]
     Active Substance: POLYETHYLENE GLYCOL 3350
     Dosage: DAILY
     Route: 048
  22. NOREPINEPHRINE BITARTRATE [Concomitant]
     Active Substance: NOREPINEPHRINE BITARTRATE
     Dosage: PREMIX 16 MG  NOREPINEPHRINE BITARTRATE + 250 ML NACL 0.9%
     Route: 042
  23. SODIUM CHLORIDE [Concomitant]
     Active Substance: SODIUM CHLORIDE
     Dosage: 1000 ML, SINGLE X  1 TIME IV PIGGY BACK
     Route: 042
  24. SODIUM CHLORIDE [Concomitant]
     Active Substance: SODIUM CHLORIDE
     Dosage: 5 ML, SINGLE
     Dates: start: 20250919, end: 20250919
  25. SODIUM CHLORIDE [Concomitant]
     Active Substance: SODIUM CHLORIDE
     Dosage: 400MCG DEXMEDETOMIDINE + PREMIX 0.9% NACL 0.9% 100 ML
     Route: 042
  26. SODIUM CHLORIDE [Concomitant]
     Active Substance: SODIUM CHLORIDE
     Dosage: PREMIX 16 MG  NOREPINEPHRINE BITARTRATE + 250 ML NACL 0.9%
     Route: 042
  27. NORTRIPTYLINE HYDROCHLORIDE [Concomitant]
     Active Substance: NORTRIPTYLINE HYDROCHLORIDE
  28. OMEGA-3 FATTY ACIDS [Concomitant]
     Active Substance: OMEGA-3 FATTY ACIDS
  29. ONDANSETRON [Concomitant]
     Active Substance: ONDANSETRON
     Route: 040
  30. PANTOPRAZOLE [Concomitant]
     Active Substance: PANTOPRAZOLE
  31. PERCOCET [Concomitant]
     Active Substance: ACETAMINOPHEN\OXYCODONE HYDROCHLORIDE
     Route: 048
  32. PREGABALIN [Concomitant]
     Active Substance: PREGABALIN

REACTIONS (5)
  - Cardio-respiratory arrest [Unknown]
  - Pulseless electrical activity [Unknown]
  - Feeling hot [Unknown]
  - Hyperhidrosis [Unknown]
  - Pallor [Unknown]

NARRATIVE: CASE EVENT DATE: 20250919
